FAERS Safety Report 8845238 (Version 3)
Quarter: 2013Q4

REPORT INFORMATION
  Report Type: Spontaneous
  Country: US (occurrence: US)
  Receive Date: 20121017
  Receipt Date: 20131210
  Transmission Date: 20140711
  Serious: Yes (Other)
  Sender: FDA-Public Use
  Company Number: US-BAYER-2012-107738

PATIENT
  Age: 21 Year
  Sex: Female
  Weight: 63.49 kg

DRUGS (3)
  1. YASMIN [Suspect]
     Indication: PREMENSTRUAL SYNDROME
     Dosage: UNK
     Dates: start: 2001, end: 2012
  2. YASMIN [Suspect]
     Indication: PREMENSTRUAL DYSPHORIC DISORDER
  3. METFORMIN [Concomitant]
     Indication: BLOOD INSULIN ABNORMAL
     Dosage: UNK

REACTIONS (8)
  - Cholecystectomy [None]
  - Cholecystitis chronic [None]
  - Injury [None]
  - Pain [None]
  - Emotional distress [None]
  - Anxiety [None]
  - Psychological trauma [None]
  - Off label use [None]
